FAERS Safety Report 25417632 (Version 3)
Quarter: 2025Q4

REPORT INFORMATION
  Report Type: Report from Study
  Country: EU (occurrence: EU)
  Receive Date: 20250610
  Receipt Date: 20251126
  Transmission Date: 20260118
  Serious: No
  Sender: TAKEDA
  Company Number: EU-TAKEDA-2025TUS031941

PATIENT
  Age: 68 Year
  Sex: Female

DRUGS (17)
  1. TEDUGLUTIDE [Suspect]
     Active Substance: TEDUGLUTIDE
     Indication: Short-bowel syndrome
     Dosage: 2.8 MILLIGRAM, QD
     Dates: start: 20171002, end: 202102
  2. TEDUGLUTIDE [Suspect]
     Active Substance: TEDUGLUTIDE
     Dosage: 2.8 MILLIGRAM, QD
     Dates: start: 202102
  3. TEDUGLUTIDE [Suspect]
     Active Substance: TEDUGLUTIDE
  4. TEDUGLUTIDE [Suspect]
     Active Substance: TEDUGLUTIDE
  5. LOPERAMIDE [Concomitant]
     Active Substance: LOPERAMIDE
     Indication: Supplementation therapy
     Dosage: 2 MILLIGRAM, BID
  6. LANSOPRAZOLE [Concomitant]
     Active Substance: LANSOPRAZOLE
     Indication: Supplementation therapy
     Dosage: 30 MILLIGRAM, QD
  7. DEURSIL [Concomitant]
     Active Substance: URSODIOL
     Indication: Lithiasis
     Dosage: 300 MILLIGRAM, BID
     Dates: start: 1993
  8. KONAKION [Concomitant]
     Active Substance: PHYTONADIONE
     Indication: Nutritional supplementation
     Dosage: UNK UNK, 1/WEEK
  9. METRONIDAZOLE [Concomitant]
     Active Substance: METRONIDAZOLE
     Indication: Supplementation therapy
     Dosage: 250 MILLIGRAM, TID
  10. PROBIOTICS NOS [Concomitant]
     Active Substance: PROBIOTICS NOS
     Indication: Nutritional supplementation
     Dosage: 1 INTERNATIONAL UNIT
  11. PROLIA [Concomitant]
     Active Substance: DENOSUMAB
     Indication: Osteoporosis
     Dosage: 60 MILLIGRAM, Q6MONTHS
  12. Prisma [Concomitant]
     Indication: Prophylaxis
     Dosage: UNK UNK, BID
     Dates: start: 20230605
  13. CALCIFEDIOL [Concomitant]
     Active Substance: CALCIFEDIOL
     Indication: Hypocalcaemia
     Dosage: 6 GTT DROPS, QD
     Dates: start: 20241001
  14. Calcio base [Concomitant]
     Indication: Mineral supplementation
     Dosage: UNK
  15. Milesax [Concomitant]
     Indication: Prophylaxis
     Dosage: UNK
  16. METOPROLOL [Concomitant]
     Active Substance: METOPROLOL
     Indication: Prophylaxis
     Dosage: UNK UNK, BID
     Dates: start: 20241218
  17. BISOPROLOL [Concomitant]
     Active Substance: BISOPROLOL
     Indication: Extrasystoles
     Dosage: UNK UNK, QD
     Dates: start: 202202, end: 20241217

REACTIONS (2)
  - Radius fracture [Recovered/Resolved]
  - Large intestine polyp [Recovered/Resolved]

NARRATIVE: CASE EVENT DATE: 20241201
